FAERS Safety Report 12607164 (Version 1)
Quarter: 2016Q3

REPORT INFORMATION
  Report Type: Spontaneous
  Country: JP (occurrence: JP)
  Receive Date: 20160729
  Receipt Date: 20160729
  Transmission Date: 20161109
  Serious: Yes (Hospitalization)
  Sender: FDA-Public Use
  Company Number: 2016-001212 WARNER CHILCOTT

PATIENT
  Age: 19 Year
  Sex: Male

DRUGS (3)
  1. PREDONINE [Suspect]
     Active Substance: PREDNISOLONE\PREDNISOLONE ACETATE\PREDNISOLONE SODIUM SUCCINATE
     Route: 065
     Dates: start: 20160517
  2. PARIET [Suspect]
     Active Substance: RABEPRAZOLE SODIUM
     Route: 048
  3. BENET [Suspect]
     Active Substance: RISEDRONATE SODIUM
     Indication: OSTEOPOROSIS PROPHYLAXIS
     Route: 048

REACTIONS (7)
  - Nausea [Recovering/Resolving]
  - Dyspnoea [Recovering/Resolving]
  - Hepatic function abnormal [Unknown]
  - Internal haemorrhage [None]
  - Purpura [Unknown]
  - Discomfort [None]
  - Pyrexia [Recovering/Resolving]

NARRATIVE: CASE EVENT DATE: 20160521
